FAERS Safety Report 25892668 (Version 4)
Quarter: 2025Q4

REPORT INFORMATION
  Report Type: Spontaneous
  Country: EU (occurrence: EU)
  Receive Date: 20251007
  Receipt Date: 20251117
  Transmission Date: 20260117
  Serious: Yes (Hospitalization, Other)
  Sender: SANDOZ
  Company Number: EU-TEVA-VS-3374836

PATIENT
  Age: 79 Year
  Sex: Female

DRUGS (11)
  1. AMOXICILLIN [Suspect]
     Active Substance: AMOXICILLIN
     Indication: Bronchitis
     Dosage: 5 DAYS OF AMOXICILLIN
     Route: 065
  2. AMOXICILLIN [Suspect]
     Active Substance: AMOXICILLIN
     Indication: Antibiotic prophylaxis
  3. EMPAGLIFLOZIN [Suspect]
     Active Substance: EMPAGLIFLOZIN
     Indication: Product used for unknown indication
     Dosage: UNK
     Route: 065
  4. INDAPAMIDE [Suspect]
     Active Substance: INDAPAMIDE
     Indication: Product used for unknown indication
     Dosage: UNK
     Route: 065
  5. OMEPRAZOLE [Suspect]
     Active Substance: OMEPRAZOLE
     Dosage: 40 MG
     Route: 065
  6. OMEPRAZOLE [Suspect]
     Active Substance: OMEPRAZOLE
     Indication: Product used for unknown indication
     Dosage: UNK
     Route: 065
  7. ACETAMINOPHEN [Suspect]
     Active Substance: ACETAMINOPHEN
     Indication: Bronchitis
     Dosage: 5 DAYS OF ACETAMINOPHEN
     Route: 065
  8. ACETAMINOPHEN [Suspect]
     Active Substance: ACETAMINOPHEN
     Indication: Antibiotic prophylaxis
  9. PERINDOPRIL [Suspect]
     Active Substance: PERINDOPRIL
     Indication: Product used for unknown indication
     Dosage: UNK
     Route: 065
  10. INDAPAMIDE [Concomitant]
     Active Substance: INDAPAMIDE
     Indication: Product used for unknown indication
     Dosage: UNK
     Route: 065
  11. PERINDOPRIL [Concomitant]
     Active Substance: PERINDOPRIL
     Indication: Product used for unknown indication
     Dosage: UNK
     Route: 065

REACTIONS (13)
  - Hyperkalaemia [Unknown]
  - Metabolic acidosis [Unknown]
  - Hypernatraemia [Unknown]
  - Oliguria [Unknown]
  - Acute kidney injury [Unknown]
  - Acute kidney injury [Unknown]
  - Nephritis allergic [Unknown]
  - Drug hypersensitivity [Unknown]
  - Confusional state [Unknown]
  - Multiple injuries [Unknown]
  - Multiple drug therapy [Unknown]
  - Vasoconstriction [Unknown]
  - Off label use [Unknown]
